FAERS Safety Report 16728602 (Version 1)
Quarter: 2019Q3

REPORT INFORMATION
  Report Type: Spontaneous
  Country: DE (occurrence: DE)
  Receive Date: 20190822
  Receipt Date: 20190822
  Transmission Date: 20191005
  Serious: Yes (Hospitalization)
  Sender: FDA-Public Use
  Company Number: DE-TEVA-2019-DE-1094630

PATIENT
  Age: 38 Year
  Sex: Male

DRUGS (7)
  1. AKINETON [Concomitant]
     Active Substance: BIPERIDEN HYDROCHLORIDE
     Indication: MUSCLE RIGIDITY
     Dosage: 4 MILLIGRAM DAILY; 2-2.5 HOURS AFTER USE IMPROVEMENT
     Route: 048
  2. NEBIVOLOL 5 MG [Concomitant]
     Active Substance: NEBIVOLOL
     Dosage: FOR MANY YEARS
  3. FLUVOXAMIN [Concomitant]
     Active Substance: FLUVOXAMINE MALEATE
     Dosage: 100 MILLIGRAM DAILY; DAILY DOSE 50 MG- 0-50 MG, SINCE 0.75 YEARS
     Dates: start: 2018
  4. ORFIRIL [Concomitant]
     Active Substance: VALPROATE SODIUM
     Indication: EPILEPSY
     Dosage: 900MG-0-900MG
  5. HALDOL DECANOAS JANSSEN [Concomitant]
     Route: 058
     Dates: start: 2017
  6. LEPONEX MYLAN [Suspect]
     Active Substance: CLOZAPINE
     Dosage: DAILY DOSE 50 MG- 0-450 MG
     Dates: start: 2018
  7. CLOZAPIN-RATIOPHARM 200 MG TABLETTEN [Suspect]
     Active Substance: CLOZAPINE
     Indication: SCHIZOPHRENIA
     Dosage: 500 MILLIGRAM DAILY;
     Route: 048
     Dates: start: 2018

REACTIONS (5)
  - Rathke^s cleft cyst [Not Recovered/Not Resolved]
  - Trismus [Not Recovered/Not Resolved]
  - Mental disorder [Not Recovered/Not Resolved]
  - Loss of consciousness [Not Recovered/Not Resolved]
  - Reduced facial expression [Not Recovered/Not Resolved]
